FAERS Safety Report 7389113-2 (Version None)
Quarter: 2011Q2

REPORT INFORMATION
  Report Type: 
  Country: None (occurrence: None)
  Receive Date: 20110401
  Receipt Date: 20110324
  Transmission Date: 20111010
  Serious: Yes (Other)
  Sender: FDA-Public Use
  Company Number: CN-ROCHE-767522

PATIENT
  Age: 47 Year
  Sex: Male
  Weight: 60 kg

DRUGS (4)
  1. PEGASYS [Suspect]
     Indication: HEPATITIS C
     Route: 058
     Dates: start: 20101105, end: 20110114
  2. PEGASYS [Suspect]
     Route: 058
     Dates: start: 20110121, end: 20110225
  3. GLUTHION [Concomitant]
     Indication: PROPHYLAXIS
     Dosage: REPORTED DRUG:REDUCED GLUTATHIONE
     Route: 041
     Dates: start: 20110307, end: 20110314
  4. RIBAVARIN [Concomitant]
     Indication: HEPATITIS C
     Dosage: MANUFACTURER:TIAN JIN PACIFIC PHARMACEUTICAL FACTORY
     Route: 048
     Dates: start: 20101105, end: 20110225

REACTIONS (4)
  - WHITE BLOOD CELL COUNT DECREASED [None]
  - PROTEINURIA [None]
  - PLATELET COUNT DECREASED [None]
  - OEDEMA [None]
